FAERS Safety Report 5886390-1 (Version None)
Quarter: 2008Q3

REPORT INFORMATION
  Report Type: 
  Country: None (occurrence: None)
  Receive Date: 20080818
  Receipt Date: 20071211
  Transmission Date: 20090109
  Serious: No
  Sender: FDA-Public Use
  Company Number: 20074364

PATIENT
  Age: 8 Year
  Sex: Female

DRUGS (1)
  1. LIORESAL [Suspect]
     Indication: MUSCLE SPASTICITY
     Dosage: 0.1 MCG DAILY INTRATHECAL
     Route: 037

REACTIONS (2)
  - HYPOTONIA [None]
  - RASH [None]
